FAERS Safety Report 5527985-4 (Version None)
Quarter: 2007Q4

REPORT INFORMATION
  Report Type: 
  Country: None (occurrence: None)
  Receive Date: 20071128
  Receipt Date: 20071120
  Transmission Date: 20080405
  Serious: Yes (Hospitalization, Other)
  Sender: FDA-Public Use
  Company Number: US-MERCK-0708USA05884

PATIENT
  Age: 59 Year
  Sex: Female

DRUGS (8)
  1. FOSAMAX [Suspect]
     Indication: OSTEOPOROSIS PROPHYLAXIS
     Route: 048
     Dates: start: 20040126, end: 20060101
  2. TRAZODONE HYDROCHLORIDE [Concomitant]
     Route: 065
     Dates: start: 20040101, end: 20070101
  3. AMITRIPTYLINE HYDROCHLORIDE [Concomitant]
     Route: 065
     Dates: start: 20040101, end: 20070101
  4. METHOTREXATE [Concomitant]
     Indication: PAIN
     Route: 065
     Dates: start: 20010101, end: 20070101
  5. FUROSEMIDE [Concomitant]
     Indication: FLUID RETENTION
     Route: 065
     Dates: start: 20010101, end: 20070101
  6. HYDROCODONE BITARTRATE [Concomitant]
     Indication: PAIN
     Route: 065
     Dates: start: 20010101, end: 20070101
  7. ADVAIR DISKUS 100/50 [Concomitant]
     Indication: DYSPNOEA
     Route: 065
     Dates: start: 20040101, end: 20060101
  8. FLONASE [Concomitant]
     Indication: DYSPNOEA
     Route: 065
     Dates: start: 20040101, end: 20060101

REACTIONS (3)
  - DERMATOMYOSITIS [None]
  - OSTEONECROSIS [None]
  - TOOTH LOSS [None]
